FAERS Safety Report 24133777 (Version 2)
Quarter: 2024Q3

REPORT INFORMATION
  Report Type: Other
  Country: US (occurrence: US)
  Receive Date: 20240724
  Receipt Date: 20240822
  Transmission Date: 20241016
  Serious: No
  Sender: TRAVERE THERAPEUTICS
  Company Number: US-TRAVERE-2024TVT00586

PATIENT
  Age: 61 Year
  Sex: Male

DRUGS (1)
  1. FILSPARI [Suspect]
     Active Substance: SPARSENTAN
     Indication: IgA nephropathy
     Route: 048
     Dates: end: 20240801

REACTIONS (4)
  - Headache [Unknown]
  - Blood pressure abnormal [Unknown]
  - Abdominal discomfort [Unknown]
  - Andropause [Recovered/Resolved]

NARRATIVE: CASE EVENT DATE: 20240804
